FAERS Safety Report 4572066-X (Version None)
Quarter: 2005Q1

REPORT INFORMATION
  Report Type: 
  Country: None (occurrence: None)
  Receive Date: 20050202
  Receipt Date: 20050118
  Transmission Date: 20050727
  Serious: Yes (Other)
  Sender: FDA-Public Use
  Company Number: USA050187710

PATIENT
  Age: 12 Year
  Sex: 0

DRUGS (1)
  1. STRATTERA [Suspect]

REACTIONS (1)
  - MITRAL VALVE INCOMPETENCE [None]
